FAERS Safety Report 6862313-3 (Version None)
Quarter: 2010Q3

REPORT INFORMATION
  Report Type: 
  Country: None (occurrence: None)
  Receive Date: 20100721
  Receipt Date: 20100707
  Transmission Date: 20110219
  Serious: Yes (Hospitalization)
  Sender: FDA-Public Use
  Company Number: PHHY2010MT14940

PATIENT
  Sex: Female

DRUGS (3)
  1. ZOMETA [Suspect]
     Indication: METASTASES TO BONE
     Dosage: 4MG/5ML, EVERY 4 WEEKS
  2. CEFUROXIME [Concomitant]
     Indication: MASTITIS
     Dosage: UNK
  3. IDEOS [Concomitant]
     Dosage: UNK

REACTIONS (14)
  - BLOOD CREATININE INCREASED [None]
  - CEREBRAL CALCIFICATION [None]
  - CONVULSION [None]
  - DEHYDRATION [None]
  - HYPOCALCAEMIA [None]
  - LIVER FUNCTION TEST ABNORMAL [None]
  - MASTITIS [None]
  - METASTASES TO CENTRAL NERVOUS SYSTEM [None]
  - METASTASES TO LIVER [None]
  - POLYURIA [None]
  - RASH [None]
  - RENAL FAILURE ACUTE [None]
  - TREMOR [None]
  - VOMITING [None]
